FAERS Safety Report 13719824 (Version 2)
Quarter: 2017Q3

REPORT INFORMATION
  Report Type: Report from Study
  Country: US (occurrence: US)
  Receive Date: 20170705
  Receipt Date: 20170713
  Transmission Date: 20171127
  Serious: Yes (Hospitalization, Other)
  Sender: FDA-Public Use
  Company Number: US-GILEAD-2017-0272402

PATIENT
  Age: 46 Year
  Sex: Male
  Weight: 132.2 kg

DRUGS (52)
  1. RITONAVIR. [Concomitant]
     Active Substance: RITONAVIR
     Indication: HIV INFECTION
     Dosage: 100 MG, UNK
     Dates: start: 2012, end: 20170115
  2. RITONAVIR. [Concomitant]
     Active Substance: RITONAVIR
     Dosage: 100 MG, UNK
     Dates: start: 20170116, end: 20170501
  3. COLACE [Concomitant]
     Active Substance: DOCUSATE SODIUM
     Indication: HAEMATOCHEZIA
     Route: 048
     Dates: start: 2014
  4. PLAVIX [Concomitant]
     Active Substance: CLOPIDOGREL BISULFATE
     Indication: CEREBROVASCULAR ACCIDENT PROPHYLAXIS
     Route: 048
     Dates: start: 2014
  5. DESCOVY [Concomitant]
     Active Substance: EMTRICITABINE\TENOFOVIR ALAFENAMIDE FUMARATE
     Indication: HIV INFECTION
     Route: 065
     Dates: start: 20170127, end: 20170501
  6. ZYPREXA [Concomitant]
     Active Substance: OLANZAPINE
     Indication: SCHIZOPHRENIA
     Route: 048
     Dates: start: 2014
  7. FOLIC ACID. [Concomitant]
     Active Substance: FOLIC ACID
     Indication: ANAEMIA
     Route: 048
     Dates: start: 2012
  8. ENTERIC ASPIRIN [Concomitant]
     Active Substance: ASPIRIN
     Indication: CEREBROVASCULAR ACCIDENT PROPHYLAXIS
     Route: 048
     Dates: start: 20170114, end: 20170204
  9. METOCLOPRAMIDE. [Concomitant]
     Active Substance: METOCLOPRAMIDE
     Indication: PROPHYLAXIS
     Route: 048
     Dates: start: 20170127, end: 20170306
  10. IOHEXOL [Concomitant]
     Active Substance: IOHEXOL
     Route: 048
     Dates: start: 20170130, end: 20170130
  11. DOLUTEGRAVIR [Concomitant]
     Active Substance: DOLUTEGRAVIR
     Indication: HIV INFECTION
     Dates: start: 20170116, end: 20170126
  12. SELENIUM [Concomitant]
     Active Substance: SELENIUM
     Indication: PSORIASIS
     Route: 061
     Dates: start: 2012
  13. BOOSTRIX [Concomitant]
     Active Substance: TETANUS TOXOID, REDUCED DIPHTHERIA TOXOID AND ACELLULAR PERTUSSIS VACCINE, ADSORBED ANTIGENS
     Indication: PROPHYLAXIS
     Route: 030
     Dates: start: 20170112, end: 20170112
  14. OXYCODONE [Concomitant]
     Active Substance: OXYCODONE
     Indication: HIP FRACTURE
     Route: 048
     Dates: start: 20170127, end: 20170306
  15. HEPARIN [Concomitant]
     Active Substance: HEPARIN SODIUM
     Indication: PROPHYLAXIS
     Route: 058
     Dates: start: 20170116, end: 20170126
  16. DARUNAVIR [Concomitant]
     Active Substance: DARUNAVIR
     Indication: HIV INFECTION
     Dosage: 800 MG, UNK
     Dates: start: 2012, end: 20170115
  17. VITAMIN D2 [Concomitant]
     Active Substance: ERGOCALCIFEROL
     Indication: SUPPLEMENTATION THERAPY
     Route: 048
     Dates: start: 2010
  18. CELEXA [Concomitant]
     Active Substance: CITALOPRAM HYDROBROMIDE
     Indication: SCHIZOPHRENIA
     Route: 048
     Dates: start: 2012
  19. DYAZIDE [Concomitant]
     Active Substance: HYDROCHLOROTHIAZIDE\TRIAMTERENE
     Indication: HYPERTENSION
     Dosage: UNK
     Route: 048
     Dates: start: 2010, end: 20170130
  20. LISINOPRIL. [Concomitant]
     Active Substance: LISINOPRIL
     Route: 048
     Dates: start: 2010, end: 20170130
  21. MIRALAX [Concomitant]
     Active Substance: POLYETHYLENE GLYCOL 3350
     Route: 048
     Dates: start: 2014, end: 20170310
  22. KETAMINE [Concomitant]
     Active Substance: KETAMINE
     Indication: JOINT DISLOCATION REDUCTION
     Route: 042
     Dates: start: 20170112, end: 20170112
  23. PROPOFOL. [Concomitant]
     Active Substance: PROPOFOL
     Indication: JOINT DISLOCATION REDUCTION
     Route: 042
     Dates: start: 20170112, end: 20170112
  24. OXYCODONE AND ACETAMINOPHEN [Concomitant]
     Active Substance: ACETAMINOPHEN\OXYCODONE HYDROCHLORIDE
     Indication: MUSCULOSKELETAL PAIN
  25. OXYCODONE [Concomitant]
     Active Substance: OXYCODONE
     Indication: MUSCULOSKELETAL PAIN
  26. VANCOMYCIN [Concomitant]
     Active Substance: VANCOMYCIN
     Indication: ABDOMINAL SEPSIS
     Route: 042
     Dates: start: 20170130, end: 20170204
  27. EMTRICITABINE/TENOFOVIR DISOPROXIL FUMARATE [Suspect]
     Active Substance: EMTRICITABINE\TENOFOVIR DISOPROXIL FUMARATE
     Indication: HIV INFECTION
     Dosage: 1 DF, UNK
     Route: 048
     Dates: start: 2012, end: 20170115
  28. DARUNAVIR [Concomitant]
     Active Substance: DARUNAVIR
     Dosage: 800 MG, UNK
     Dates: start: 20170116, end: 20170501
  29. ASPIRIN                            /00002701/ [Concomitant]
     Active Substance: ASPIRIN
     Indication: CARDIOVASCULAR EVENT PROPHYLAXIS
     Dosage: UNK
     Route: 048
     Dates: start: 2014, end: 20170114
  30. MIRALAX [Concomitant]
     Active Substance: POLYETHYLENE GLYCOL 3350
     Indication: HAEMATOCHEZIA
     Route: 048
     Dates: start: 2014
  31. FENTANYL                           /00174602/ [Concomitant]
     Active Substance: FENTANYL
     Indication: JOINT DISLOCATION REDUCTION
     Route: 042
     Dates: start: 20170112, end: 20170112
  32. DIAZEPAM. [Concomitant]
     Active Substance: DIAZEPAM
     Indication: JOINT DISLOCATION REDUCTION
     Route: 048
     Dates: start: 20170112, end: 20170112
  33. INDOMETHACIN                       /00003801/ [Concomitant]
     Active Substance: INDOMETHACIN
     Indication: HIP FRACTURE
     Route: 048
     Dates: start: 20170113, end: 20170118
  34. VITAMIN B12 [Concomitant]
     Active Substance: CYANOCOBALAMIN
     Indication: SUPPLEMENTATION THERAPY
     Route: 048
     Dates: start: 2010
  35. INDOMETHACIN                       /00003801/ [Concomitant]
     Active Substance: INDOMETHACIN
     Indication: MUSCULOSKELETAL PAIN
  36. METOCLOPRAMIDE. [Concomitant]
     Active Substance: METOCLOPRAMIDE
     Indication: VOMITING
  37. ALCLOMETASONE [Concomitant]
     Active Substance: ALCLOMETASONE
     Indication: PSORIASIS
     Route: 061
     Dates: start: 20170103
  38. BICTEGRAVIR W/EMTRICITABINE/TENOFOVIR ALAFENAMIDE [Suspect]
     Active Substance: BICTEGRAVIR\EMTRICITABINE\TENOFOVIR
     Indication: HIV INFECTION
     Dosage: 1 DF, QD
     Route: 048
     Dates: start: 20170502
  39. CLOBETASOL [Concomitant]
     Active Substance: CLOBETASOL
     Indication: PSORIASIS
     Route: 061
     Dates: start: 2009
  40. LISINOPRIL. [Concomitant]
     Active Substance: LISINOPRIL
     Indication: HYPERTENSION
     Route: 048
     Dates: start: 2010
  41. FENTANYL                           /00174602/ [Concomitant]
     Active Substance: FENTANYL
     Indication: ABDOMINAL SEPSIS
     Dosage: UNK
     Route: 042
     Dates: start: 20170130, end: 20170130
  42. SODIUM CHLORIDE. [Concomitant]
     Active Substance: SODIUM CHLORIDE
     Dosage: UNK
     Route: 042
     Dates: start: 20170116, end: 20170126
  43. OXYCODONE AND ACETAMINOPHEN [Concomitant]
     Active Substance: ACETAMINOPHEN\OXYCODONE HYDROCHLORIDE
     Indication: HIP FRACTURE
     Route: 048
     Dates: start: 20170113, end: 20170123
  44. CEFTRIAXONE. [Concomitant]
     Active Substance: CEFTRIAXONE
     Indication: ABDOMINAL SEPSIS
     Route: 042
     Dates: start: 20170130, end: 20170204
  45. METRONIDAZOLE. [Concomitant]
     Active Substance: METRONIDAZOLE
     Indication: ABDOMINAL SEPSIS
     Route: 042
     Dates: start: 20170130, end: 20170204
  46. LACTATED RINGERS [Concomitant]
     Active Substance: CALCIUM CHLORIDE\POTASSIUM CHLORIDE\SODIUM CHLORIDE\SODIUM LACTATE
     Indication: FLUID REPLACEMENT
     Route: 042
     Dates: start: 20170130, end: 20170130
  47. EMTRICITABINE [Concomitant]
     Active Substance: EMTRICITABINE
     Indication: HIV INFECTION
     Dates: start: 20170116, end: 20170126
  48. PRAVASTATIN. [Concomitant]
     Active Substance: PRAVASTATIN
     Indication: HYPERLIPIDAEMIA
     Route: 048
     Dates: start: 2010
  49. MORPHINE [Concomitant]
     Active Substance: MORPHINE
     Indication: JOINT DISLOCATION REDUCTION
     Route: 042
     Dates: start: 20170112, end: 20170112
  50. SODIUM CHLORIDE. [Concomitant]
     Active Substance: SODIUM CHLORIDE
     Indication: FLUID REPLACEMENT
     Dosage: UNK
     Route: 042
     Dates: start: 20170112, end: 20170112
  51. PIPERACILLIN [Concomitant]
     Active Substance: PIPERACILLIN
     Indication: ABDOMINAL SEPSIS
     Route: 042
     Dates: start: 20170130, end: 20170204
  52. PANTOPRAZOLE [Concomitant]
     Active Substance: PANTOPRAZOLE
     Indication: PROPHYLAXIS
     Route: 042
     Dates: start: 20170130, end: 20170204

REACTIONS (3)
  - Acute kidney injury [Recovered/Resolved]
  - Lower gastrointestinal haemorrhage [Recovered/Resolved]
  - Hypovolaemic shock [Recovered/Resolved]

NARRATIVE: CASE EVENT DATE: 20170130
